FAERS Safety Report 24179195 (Version 2)
Quarter: 2024Q3

REPORT INFORMATION
  Report Type: Spontaneous
  Country: US (occurrence: US)
  Receive Date: 20240806
  Receipt Date: 20240905
  Transmission Date: 20241017
  Serious: Yes (Other)
  Sender: ORGANON
  Company Number: US-ORGANON-O2407USA002964

PATIENT
  Sex: Female

DRUGS (1)
  1. NEXPLANON [Suspect]
     Active Substance: ETONOGESTREL
     Indication: Contraception
     Dosage: 1 IMPLANT, 68 MG, RIGHT ARM
     Route: 059
     Dates: start: 2022, end: 20240729

REACTIONS (5)
  - Device expulsion [Recovered/Resolved]
  - Device breakage [Recovered/Resolved]
  - Implant site pruritus [Unknown]
  - Scratch [Unknown]
  - Complication of device removal [Recovered/Resolved]

NARRATIVE: CASE EVENT DATE: 20240101
